FAERS Safety Report 14515054 (Version 1)
Quarter: 2018Q1

REPORT INFORMATION
  Report Type: Spontaneous
  Country: DE (occurrence: DE)
  Receive Date: 20180209
  Receipt Date: 20180209
  Transmission Date: 20180509
  Serious: Yes (Other)
  Sender: FDA-Public Use
  Company Number: DE-ASTRAZENECA-2018SE15736

PATIENT
  Age: 22579 Day
  Sex: Male

DRUGS (1)
  1. BRILIQUE [Suspect]
     Active Substance: TICAGRELOR
     Dosage: 90.0MG UNKNOWN
     Route: 048
     Dates: start: 20171224

REACTIONS (3)
  - Coronary artery reocclusion [Unknown]
  - Acute myocardial infarction [Unknown]
  - Vascular stent stenosis [Unknown]

NARRATIVE: CASE EVENT DATE: 20180109
